FAERS Safety Report 20669077 (Version 1)
Quarter: 2022Q2

REPORT INFORMATION
  Report Type: Report from Study
  Country: US (occurrence: None)
  Receive Date: 20220404
  Receipt Date: 20220404
  Transmission Date: 20220721
  Serious: Yes (Hospitalization, Other)
  Sender: FDA-Public Use
  Company Number: US-ROCHE-3046654

PATIENT
  Age: 25 Year
  Sex: Female
  Weight: 64.7 kg

DRUGS (9)
  1. RITUXIMAB [Suspect]
     Active Substance: RITUXIMAB
     Indication: Precursor B-lymphoblastic lymphoma
     Dosage: ON DAYS 1 AND 8 AND THEN AGAIN ON DAYS 29 AND 36
     Route: 041
     Dates: start: 20220121, end: 20220121
  2. CYTARABINE [Suspect]
     Active Substance: CYTARABINE
     Indication: Precursor B-lymphoblastic lymphoma
     Dosage: ON DAYS 1-4, 8-11, 29-32, AND 36-39
     Route: 042
     Dates: start: 20220121, end: 20220121
  3. CYCLOPHOSPHAMIDE [Suspect]
     Active Substance: CYCLOPHOSPHAMIDE
     Indication: Precursor B-lymphoblastic lymphoma
     Dosage: ON DAY 1 AND 29
     Route: 042
     Dates: start: 20220121, end: 20220121
  4. DEXAMETHASONE [Suspect]
     Active Substance: DEXAMETHASONE
     Indication: Precursor B-lymphoblastic lymphoma
     Dosage: CYCLIC
     Route: 065
     Dates: start: 20220121, end: 20220121
  5. INOTUZUMAB OZOGAMICIN [Suspect]
     Active Substance: INOTUZUMAB OZOGAMICIN
     Indication: Precursor B-lymphoblastic lymphoma
     Dosage: ON DAY 1, 8 AND 15 OF A 28-DAY CYCLE
     Route: 042
     Dates: start: 20211119, end: 20220105
  6. METHOTREXATE SODIUM [Suspect]
     Active Substance: METHOTREXATE SODIUM
     Indication: Precursor B-lymphoblastic lymphoma
     Dosage: ON DAYS 1, 8, 15, AND 22
     Route: 037
  7. VINCRISTINE SULFATE [Suspect]
     Active Substance: VINCRISTINE SULFATE
     Indication: Precursor B-lymphoblastic lymphoma
     Dosage: ON DAYS 15, 22, 43, AND 50
     Route: 042
  8. MERCAPTOPURINE [Suspect]
     Active Substance: MERCAPTOPURINE
     Indication: Precursor B-lymphoblastic lymphoma
     Dosage: ON DAYS 1-14 AND 29-42
     Route: 048
  9. PEGASPARGASE [Suspect]
     Active Substance: PEGASPARGASE
     Indication: Precursor B-lymphoblastic lymphoma
     Dosage: 2000 IU/M2 ON DAYS 15 AND 43
     Route: 042

REACTIONS (5)
  - Platelet count decreased [Recovering/Resolving]
  - Epistaxis [Recovered/Resolved]
  - Haematuria [Recovering/Resolving]
  - Stomatitis [Recovering/Resolving]
  - Pyrexia [Recovering/Resolving]

NARRATIVE: CASE EVENT DATE: 20220207
